FAERS Safety Report 6640624-4 (Version None)
Quarter: 2010Q1

REPORT INFORMATION
  Report Type: 
  Country: None (occurrence: None)
  Receive Date: 20100318
  Receipt Date: 20100316
  Transmission Date: 20100710
  Serious: Yes (Hospitalization)
  Sender: FDA-Public Use
  Company Number: SE-BRISTOL-MYERS SQUIBB COMPANY-15019797

PATIENT
  Sex: Female

DRUGS (2)
  1. ABILIFY [Suspect]
     Dates: start: 20090101
  2. RISPERDAL [Concomitant]
     Dates: start: 20080101

REACTIONS (3)
  - MEMORY IMPAIRMENT [None]
  - NEUROLEPTIC MALIGNANT SYNDROME [None]
  - PHARYNGEAL OEDEMA [None]
